FAERS Safety Report 5512804-2 (Version None)
Quarter: 2007Q4

REPORT INFORMATION
  Report Type: 
  Country: None (occurrence: None)
  Receive Date: 20071108
  Receipt Date: 20071029
  Transmission Date: 20080405
  Serious: Yes (Death, Other)
  Sender: FDA-Public Use
  Company Number: 2007SP020180

PATIENT
  Age: 39 Year
  Sex: Male
  Weight: 79 kg

DRUGS (6)
  1. VIRAFERONPEG [Suspect]
     Indication: HEPATITIS C
     Dosage: 135 MCG; QW; SC, 120 MCG; QW; SC
     Route: 058
     Dates: start: 20061116
  2. VIRAFERONPEG [Suspect]
     Indication: HEPATITIS C
     Dosage: 135 MCG; QW; SC, 120 MCG; QW; SC
     Route: 058
     Dates: start: 20070604
  3. REBETOL [Suspect]
     Indication: HEPATITIS C
     Dosage: 1200 MG; QD; PO
     Route: 048
     Dates: start: 20061116
  4. PREVISCAN [Concomitant]
  5. ZOLOFT [Concomitant]
  6. OXAZEPAM [Concomitant]

REACTIONS (7)
  - ARRHYTHMIA [None]
  - DISEASE RECURRENCE [None]
  - LUNG DISORDER [None]
  - OEDEMA PERIPHERAL [None]
  - PULMONARY EMBOLISM [None]
  - SUDDEN DEATH [None]
  - VOMITING [None]
